FAERS Safety Report 11088868 (Version 2)
Quarter: 2015Q4

REPORT INFORMATION
  Report Type: Spontaneous
  Country: US (occurrence: US)
  Receive Date: 20150504
  Receipt Date: 20151019
  Transmission Date: 20160304
  Serious: Yes (Hospitalization, Disabling, Other)
  Sender: FDA-Public Use
  Company Number: US-ENDO PHARMACEUTICALS INC.-201409204

PATIENT
  Age: 56 Year
  Sex: Male
  Weight: 89.2 kg

DRUGS (2)
  1. ANDROGEL [Suspect]
     Active Substance: TESTOSTERONE
     Indication: ANDROGEN REPLACEMENT THERAPY
     Dosage: USED ^AS PRESCRIBED^
     Route: 061
     Dates: start: 200901, end: 201303
  2. TESTIM [Suspect]
     Active Substance: TESTOSTERONE
     Indication: ANDROGEN REPLACEMENT THERAPY
     Dosage: USED ^AS PRESCRIBED^
     Route: 062
     Dates: start: 200901, end: 201303

REACTIONS (23)
  - Crying [Unknown]
  - Treatment noncompliance [Unknown]
  - Tinnitus [Not Recovered/Not Resolved]
  - Thrombophlebitis [Recovered/Resolved]
  - Insomnia [Unknown]
  - Cerebrovascular accident [Not Recovered/Not Resolved]
  - Depression [Not Recovered/Not Resolved]
  - Asthenia [Unknown]
  - Balance disorder [Unknown]
  - Pain [Unknown]
  - Cognitive disorder [Not Recovered/Not Resolved]
  - Memory impairment [Not Recovered/Not Resolved]
  - Disability [Not Recovered/Not Resolved]
  - Anger [Unknown]
  - Anxiety [Unknown]
  - Loss of consciousness [Unknown]
  - Weight decreased [Unknown]
  - Syncope [Unknown]
  - Cerebrovascular accident [Not Recovered/Not Resolved]
  - Prostate cancer [Unknown]
  - Myocardial infarction [Not Recovered/Not Resolved]
  - Fall [Unknown]
  - Decreased appetite [Unknown]

NARRATIVE: CASE EVENT DATE: 20090815
